FAERS Safety Report 19155259 (Version 2)
Quarter: 2021Q2

REPORT INFORMATION
  Report Type: Report from Study
  Country: CA (occurrence: CA)
  Receive Date: 20210420
  Receipt Date: 20210423
  Transmission Date: 20210717
  Serious: Yes (Other)
  Sender: FDA-Public Use
  Company Number: CA-JNJFOC-20210100854

PATIENT
  Age: 7 Decade
  Sex: Female
  Weight: 77 kg

DRUGS (1)
  1. REMICADE [Suspect]
     Active Substance: INFLIXIMAB
     Indication: BEHCET^S SYNDROME
     Route: 042
     Dates: start: 20170316, end: 202011

REACTIONS (20)
  - Rash [Unknown]
  - Alopecia [Unknown]
  - Asthenia [Unknown]
  - Urinary incontinence [Unknown]
  - Feeling of body temperature change [Unknown]
  - Fatigue [Unknown]
  - Language disorder [Unknown]
  - Body tinea [Unknown]
  - Splinter [Unknown]
  - Skin lesion [Unknown]
  - Dermatitis [Unknown]
  - Pain [Unknown]
  - Cough [Unknown]
  - Pyrexia [Unknown]
  - Malaise [Not Recovered/Not Resolved]
  - Dyspnoea [Unknown]
  - Pain in extremity [Unknown]
  - Behcet^s syndrome [Unknown]
  - Gait inability [Unknown]
  - Speech disorder [Unknown]
